FAERS Safety Report 5744425-0 (Version None)
Quarter: 2008Q2

REPORT INFORMATION
  Report Type: 
  Country: None (occurrence: None)
  Receive Date: 20080520
  Receipt Date: 20080509
  Transmission Date: 20081010
  Serious: Yes (Death, Hospitalization, Other)
  Sender: FDA-Public Use
  Company Number: JP-ROCHE-540268

PATIENT
  Sex: Male
  Weight: 40.8 kg

DRUGS (22)
  1. METHOXY POLYETHYLENE GLYCOL-EPOETIN BETA [Suspect]
     Route: 042
     Dates: start: 20070221, end: 20070613
  2. METHOXY POLYETHYLENE GLYCOL-EPOETIN BETA [Suspect]
     Route: 042
     Dates: start: 20070613, end: 20071001
  3. METHOXY POLYETHYLENE GLYCOL-EPOETIN BETA [Suspect]
     Route: 042
     Dates: start: 20071001, end: 20071029
  4. METHOXY POLYETHYLENE GLYCOL-EPOETIN BETA [Suspect]
     Route: 042
     Dates: start: 20071029, end: 20071112
  5. ADALAT [Concomitant]
     Dosage: PRIOR TO INITIATION OF STUDY MEDICATION.
     Dates: end: 20071119
  6. AMLODIN [Concomitant]
     Dosage: PRIOR TO INITIATION OF STUDY MEDICATION.
     Dates: end: 20071202
  7. ALFAROL [Concomitant]
     Dosage: PRIOR TO INITIATION OF STUDY MEDICATION.
  8. OLMETEC [Concomitant]
     Dosage: PRIOR TO INITIATION OF STUDY MEDICATION.
     Dates: end: 20080104
  9. CARDENALIN [Concomitant]
     Dosage: PRIOR TO THE INITIATION OF THE STUDY DRUG MEDICATION.
     Dates: end: 20080104
  10. ALLOPURINOL [Concomitant]
     Dosage: PRIOR TO THE INITIATION OF THE STUDY DRUG MEDICATION.
  11. SELOKEN [Concomitant]
     Dosage: PRIOR TO THE INITIATION OF THE STUDY DRUG MEDICATION.
     Dates: end: 20080104
  12. TAKEPRON [Concomitant]
     Dosage: PRIOR TO THE INITIATION OF THE STUDY DRUG MEDICATION.
  13. PRECIPITATED CALCIUM CARBONATE [Concomitant]
     Dosage: PRIOR TO THE INITIATION OF THE STUDY DRUG MEDICATION.
  14. ASPIRIN [Concomitant]
     Dosage: PRIOR TO THE INITIATION OF THE STUDY DRUG MEDICATION.
     Dates: end: 20071203
  15. LAXOBERON [Concomitant]
     Dosage: DOSAGE REPORTED AS 5 DAILY. PRIOR TO THE INITIATION OF THE STUDY MEDICATION.
  16. VITAMEDIN [Concomitant]
  17. VITAMEDIN [Concomitant]
  18. VITAMEDIN [Concomitant]
  19. VITAMEDIN [Concomitant]
  20. VITAMEDIN [Concomitant]
  21. FURSEMIDE [Concomitant]
     Dosage: DOSAGE REPORTED AS 1.8, 2.0 AND 2.2.
     Dates: end: 20070805
  22. HEMATOPOIETIC STIMULANTS [Concomitant]
     Dosage: DRUG REPORTED AS ESA (ERYTHROPOIESIS STIMULATING AGENT).

REACTIONS (2)
  - BILE DUCT CANCER [None]
  - GASTRIC CANCER [None]
